FAERS Safety Report 10792266 (Version 2)
Quarter: 2015Q2

REPORT INFORMATION
  Report Type: Spontaneous
  Country: US (occurrence: US)
  Receive Date: 20150213
  Receipt Date: 20150407
  Transmission Date: 20150821
  Serious: No
  Sender: FDA-Public Use
  Company Number: US-009507513-1502USA002958

PATIENT
  Age: 78 Year
  Sex: Female
  Weight: 63.49 kg

DRUGS (2)
  1. MIRALAX [Suspect]
     Active Substance: POLYETHYLENE GLYCOL 3350
     Indication: DIVERTICULITIS
     Dosage: UNK, UNKNOWN
     Route: 048
  2. EX-LAX (NEW FORMULA) [Concomitant]
     Indication: DIVERTICULITIS
     Dosage: UNK, UNKNOWN

REACTIONS (1)
  - Faecal incontinence [Unknown]
